FAERS Safety Report 6627661-0 (Version None)
Quarter: 2010Q1

REPORT INFORMATION
  Report Type: 
  Country: None (occurrence: None)
  Receive Date: 20100311
  Receipt Date: 20100301
  Transmission Date: 20100710
  Serious: Yes (Death, Life-Threatening, Hospitalization)
  Sender: FDA-Public Use
  Company Number: JP-SANOFI-AVENTIS-2010SA010281

PATIENT
  Age: 74 Year
  Sex: Male

DRUGS (3)
  1. OXALIPLATIN [Suspect]
     Route: 041
  2. CAPECITABINE [Suspect]
     Route: 048
  3. BEVACIZUMAB [Suspect]
     Route: 042

REACTIONS (5)
  - COAGULOPATHY [None]
  - DECREASED APPETITE [None]
  - MELAENA [None]
  - PLATELET COUNT DECREASED [None]
  - WHITE BLOOD CELL COUNT DECREASED [None]
